FAERS Safety Report 7149873-2 (Version None)
Quarter: 2010Q4

REPORT INFORMATION
  Report Type: 
  Country: None (occurrence: None)
  Receive Date: 20101210
  Receipt Date: 20101202
  Transmission Date: 20110411
  Serious: No
  Sender: FDA-Public Use
  Company Number: US-BIOGENIDEC-2010BI042647

PATIENT
  Age: 48 Year
  Sex: Female

DRUGS (3)
  1. TYSABRI [Suspect]
     Indication: MULTIPLE SCLEROSIS
     Route: 042
     Dates: start: 20100920, end: 20100101
  2. TYSABRI [Suspect]
     Route: 042
     Dates: start: 20090211, end: 20090211
  3. TYSABRI [Suspect]
     Route: 042
     Dates: start: 20070409, end: 20070828

REACTIONS (1)
  - BACTERIAL INFECTION [None]
